FAERS Safety Report 7180589 (Version 7)
Quarter: 2012Q4

REPORT INFORMATION
  Report Type: 
  Country: CA (occurrence: CA)
  Receive Date: 20091118
  Receipt Date: 20120917
  Transmission Date: 20130627
  Serious: Yes (Other)
  Sender: FDA-Public Use
  Company Number: PHHY2009CA48312

PATIENT
  Sex: Male

DRUGS (2)
  1. SANDOSTATIN LAR [Suspect]
     Indication: NEUROENDOCRINE TUMOUR
     Dosage: 20 mg every 4 weeks
     Route: 030
     Dates: start: 20091029
  2. SANDOSTATIN LAR [Suspect]
     Dosage: 30 mg, Every 4 weeks
     Route: 030

REACTIONS (2)
  - Cataract [Unknown]
  - Blood pressure increased [Unknown]
